FAERS Safety Report 8423880-1 (Version None)
Quarter: 2012Q2

REPORT INFORMATION
  Report Type: 
  Country: None (occurrence: None)
  Receive Date: 20120608
  Receipt Date: 20120406
  Transmission Date: 20120825
  Serious: No
  Sender: FDA-Public Use
  Company Number: US-ASTRAZENECA-2010SE03508

PATIENT
  Age: 67 Year
  Sex: Female
  Weight: 59.9 kg

DRUGS (6)
  1. ASPIRIN [Concomitant]
  2. LORAZEPAM [Concomitant]
  3. ATACAND [Suspect]
     Route: 048
     Dates: start: 20010101
  4. CALCIUM [Concomitant]
  5. VITAMIN D [Concomitant]
  6. ATACAND HCT [Suspect]
     Indication: HYPERTENSION
     Dosage: 12.5 MG ONCE EVERY MORNING AROUND 9 AM
     Route: 048

REACTIONS (11)
  - POLLAKIURIA [None]
  - DRUG INEFFECTIVE [None]
  - HYPERTENSION [None]
  - ARTHRITIS [None]
  - SLEEP DISORDER [None]
  - DIZZINESS [None]
  - BLOOD GLUCOSE DECREASED [None]
  - PARAESTHESIA [None]
  - PAIN [None]
  - SCIATICA [None]
  - STRESS [None]
